FAERS Safety Report 7773115-8 (Version None)
Quarter: 2011Q3

REPORT INFORMATION
  Report Type: 
  Country: None (occurrence: None)
  Receive Date: 20110922
  Receipt Date: 20110418
  Transmission Date: 20111222
  Serious: Yes (Other)
  Sender: FDA-Public Use
  Company Number: US-ASTRAZENECA-2007UW05884

PATIENT
  Age: 556 Month
  Sex: Male
  Weight: 122 kg

DRUGS (11)
  1. AMBIEN [Concomitant]
     Dates: start: 20040602
  2. DARVOCET-N 100 [Concomitant]
     Dosage: 1 TAB Q 4 H AS NEEDED
     Dates: start: 20040602
  3. ABILIFY [Concomitant]
  4. SEROQUEL [Suspect]
     Route: 048
     Dates: start: 20040219
  5. ATENOLOL [Concomitant]
     Dosage: DECREASED TO 25 MG DAILY
     Dates: start: 20040602
  6. ZANTAC [Concomitant]
     Dates: start: 20040602
  7. XANAX [Concomitant]
     Dosage: 1 MG HALF TAB Q 6 TO 8 H AS NEEDED
     Dates: start: 20040602
  8. SEROQUEL [Suspect]
     Route: 048
     Dates: start: 20040219
  9. SEROQUEL [Suspect]
     Indication: SLEEP DISORDER
     Dosage: 100 TO 450 MG
     Route: 048
     Dates: start: 20031101, end: 20061001
  10. SEROQUEL [Suspect]
     Indication: AFFECTIVE DISORDER
     Dosage: 100 TO 450 MG
     Route: 048
     Dates: start: 20031101, end: 20061001
  11. ZOLOFT [Concomitant]
     Dates: start: 20040602

REACTIONS (4)
  - KETOACIDOSIS [None]
  - PANCREATITIS [None]
  - TYPE 1 DIABETES MELLITUS [None]
  - TYPE 2 DIABETES MELLITUS [None]
